FAERS Safety Report 9284001 (Version 1)
Quarter: 2013Q2

REPORT INFORMATION
  Report Type: Spontaneous
  Country: IE (occurrence: IE)
  Receive Date: 20130510
  Receipt Date: 20130510
  Transmission Date: 20140414
  Serious: Yes (Other)
  Sender: FDA-Public Use
  Company Number: PHHY2013IE046260

PATIENT
  Sex: Female

DRUGS (2)
  1. CLOROM [Suspect]
     Indication: RESPIRATORY TRACT INFECTION
     Dosage: ONE DOSE (250-500MG) DAILY
     Route: 048
     Dates: start: 20130414, end: 20130414
  2. AUGMENTIN [Suspect]
     Indication: RESPIRATORY TRACT INFECTION
     Dosage: 1.2 G, UNK
     Route: 042
     Dates: start: 20130414, end: 20130414

REACTIONS (1)
  - Hypoaesthesia oral [Recovered/Resolved]
